FAERS Safety Report 21682975 (Version 2)
Quarter: 2022Q4

REPORT INFORMATION
  Report Type: Spontaneous
  Country: JP (occurrence: JP)
  Receive Date: 20221205
  Receipt Date: 20221212
  Transmission Date: 20230112
  Serious: Yes (Other)
  Sender: FDA-Public Use
  Company Number: JP-ASPEN-JPG2020JP006959

PATIENT
  Age: 5 Year
  Sex: Male

DRUGS (5)
  1. MELPHALAN [Suspect]
     Active Substance: MELPHALAN
     Indication: Neuroblastoma
     Dosage: 180 MG/M2 (MEC)
     Route: 065
  2. MELPHALAN [Suspect]
     Active Substance: MELPHALAN
     Dosage: 150 MG/M2 (BUMEL)
     Route: 065
  3. ETOPOSIDE [Suspect]
     Active Substance: ETOPOSIDE
     Indication: Neuroblastoma
     Dosage: 800 MG/M2 (MEC)
     Route: 065
  4. CARBOPLATIN [Suspect]
     Active Substance: CARBOPLATIN
     Indication: Neuroblastoma
     Dosage: 1600 MG/M2 (MEC)
     Route: 065
  5. BUSULFAN [Suspect]
     Active Substance: BUSULFAN
     Indication: Neuroblastoma
     Dosage: 1.2 X 16 MG/KG (BUMEL)
     Route: 065

REACTIONS (5)
  - Acute kidney injury [Unknown]
  - Gastrointestinal injury [Recovered/Resolved]
  - Short stature [Unknown]
  - Hypoacusis [Unknown]
  - Product use in unapproved indication [Unknown]
